FAERS Safety Report 19947485 (Version 3)
Quarter: 2021Q4

REPORT INFORMATION
  Report Type: Report from Study
  Country: GB (occurrence: GB)
  Receive Date: 20211012
  Receipt Date: 20211109
  Transmission Date: 20220304
  Serious: Yes (Life-Threatening, Hospitalization, Other)
  Sender: FDA-Public Use
  Company Number: NVSC2021GB019147

PATIENT
  Age: 62 Year
  Sex: Female
  Weight: 63.7 kg

DRUGS (6)
  1. OMNITROPE [Suspect]
     Active Substance: SOMATROPIN
     Indication: Growth hormone deficiency
     Dosage: 0.1 MG (5 MG/ 1.5 ML)
     Route: 058
     Dates: start: 20110718, end: 20160113
  2. OMNITROPE [Suspect]
     Active Substance: SOMATROPIN
     Dosage: 0.1 MG, QD (5 MG/ 1.5 ML)
     Route: 058
     Dates: start: 20161003, end: 20191121
  3. AMITRIPTYLINE [Concomitant]
     Active Substance: AMITRIPTYLINE
     Indication: Insomnia
     Dosage: UNK
     Route: 048
  4. ESTROGENS [Concomitant]
     Active Substance: ESTROGENS
     Indication: Anxiety
     Dosage: UNK
     Route: 061
     Dates: end: 20120503
  5. CITALOPRAM [Concomitant]
     Active Substance: CITALOPRAM HYDROBROMIDE
     Indication: Anxiety
     Dosage: UNK
     Route: 048
     Dates: start: 2012, end: 20130117
  6. VITAMIN B12 [Concomitant]
     Active Substance: CYANOCOBALAMIN
     Indication: Vitamin B12 deficiency
     Dosage: UNK
     Route: 030
     Dates: start: 201301

REACTIONS (3)
  - Colorectal cancer [Recovered/Resolved with Sequelae]
  - Rectal haemorrhage [Not Recovered/Not Resolved]
  - Lipoma [Not Recovered/Not Resolved]

NARRATIVE: CASE EVENT DATE: 20130117
